FAERS Safety Report 8122440-X (Version None)
Quarter: 2012Q1

REPORT INFORMATION
  Report Type: 
  Country: None (occurrence: None)
  Receive Date: 20120208
  Receipt Date: 20120131
  Transmission Date: 20120608
  Serious: Yes (Hospitalization)
  Sender: FDA-Public Use
  Company Number: US-INCYTE CORPORATION-2012IN000127

PATIENT
  Sex: Female

DRUGS (6)
  1. ALLOPURINOL [Concomitant]
  2. JAKAFI [Suspect]
     Dosage: 20 MG, BID
     Route: 048
     Dates: start: 20120121, end: 20120124
  3. LEVOXYL [Concomitant]
  4. JAKAFI [Suspect]
     Indication: MYELOFIBROSIS
     Dosage: 15 MG, BID
     Route: 048
     Dates: start: 20111223
  5. EXFORGE [Concomitant]
  6. TOPROL-XL [Concomitant]

REACTIONS (5)
  - HEADACHE [None]
  - PLATELET COUNT DECREASED [None]
  - ALOPECIA [None]
  - OROPHARYNGEAL PAIN [None]
  - PYREXIA [None]
